FAERS Safety Report 19087128 (Version 1)
Quarter: 2021Q2

REPORT INFORMATION
  Report Type: Spontaneous
  Country: US (occurrence: US)
  Receive Date: 20210402
  Receipt Date: 20210402
  Transmission Date: 20210717
  Serious: Yes (Hospitalization)
  Sender: FDA-Public Use
  Company Number: None

PATIENT
  Age: 55 Year
  Sex: Male
  Weight: 87.4 kg

DRUGS (2)
  1. CISPLATIN 87MG [Suspect]
     Active Substance: CISPLATIN
     Dates: end: 20210324
  2. G?TUBE [DEVICE] [Suspect]
     Active Substance: DEVICE

REACTIONS (3)
  - Vomiting [None]
  - Abdominal pain [None]
  - Complication associated with device [None]

NARRATIVE: CASE EVENT DATE: 20210317
